FAERS Safety Report 21979381 (Version 1)
Quarter: 2023Q1

REPORT INFORMATION
  Report Type: Spontaneous
  Country: US (occurrence: None)
  Receive Date: 20230208
  Receipt Date: 20230208
  Transmission Date: 20230418
  Serious: No
  Sender: FDA-Public Use
  Company Number: None

PATIENT
  Sex: Female

DRUGS (1)
  1. HUMIRA [Suspect]
     Active Substance: ADALIMUMAB
     Indication: Hidradenitis
     Dosage: FREQUENCY : WEEKLY;?
     Route: 058
     Dates: start: 20211207

REACTIONS (5)
  - Therapeutic product effect incomplete [None]
  - Therapy change [None]
  - Hidradenitis [None]
  - Condition aggravated [None]
  - Insurance issue [None]
